FAERS Safety Report 14593553 (Version 6)
Quarter: 2018Q2

REPORT INFORMATION
  Report Type: Report from Study
  Country: US (occurrence: US)
  Receive Date: 20180302
  Receipt Date: 20180411
  Transmission Date: 20180711
  Serious: Yes (Hospitalization)
  Sender: FDA-Public Use
  Company Number: US-PFIZER INC-2018081071

PATIENT
  Age: 22 Year
  Sex: Female
  Weight: 95.8 kg

DRUGS (15)
  1. CYCLOPHOSPHAMIDE. [Suspect]
     Active Substance: CYCLOPHOSPHAMIDE
     Indication: HODGKIN^S DISEASE STAGE IV
     Dosage: 600 MG/M2/DOSE, CYCLE = 21 DAYS, IV OVER 30-60 MIN ON DAYS 1-2
     Route: 042
     Dates: start: 20170923, end: 20170924
  2. OXYCODONE [Suspect]
     Active Substance: OXYCODONE
     Dosage: 5 MG X1
     Route: 048
     Dates: start: 20170926, end: 20170926
  3. OXYCODONE [Suspect]
     Active Substance: OXYCODONE
     Indication: PAIN
     Dosage: 5 MG X1
     Route: 048
     Dates: start: 20170921, end: 20170921
  4. MORPHINE SULFATE. [Suspect]
     Active Substance: MORPHINE SULFATE
     Indication: PROCEDURAL PAIN
     Dosage: 2 MG X1
     Route: 042
     Dates: start: 20170922, end: 20170922
  5. DOXORUBICIN HCL [Suspect]
     Active Substance: DOXORUBICIN HYDROCHLORIDE
     Indication: HODGKIN^S DISEASE STAGE IV
     Dosage: 25 MG/M2/DOSE, CYCLE = 21 DAYS, IV BOLUS OVER 1-5 MIN OR BY INTERMITTENT INFUSION OVER 1-15 MIN
     Route: 040
     Dates: start: 20170923, end: 20170924
  6. VP-16 [Suspect]
     Active Substance: ETOPOSIDE
     Indication: HODGKIN^S DISEASE STAGE IV
     Dosage: 125 MG/M2/DOSE, CYCLE = 21 DAYS, IV OVER 60-120 MIN ON DAYS 1-3
     Route: 042
     Dates: start: 20170923, end: 20170925
  7. FENTANYL. [Concomitant]
     Active Substance: FENTANYL
  8. MORPHINE SULFATE. [Suspect]
     Active Substance: MORPHINE SULFATE
     Dosage: 4 MG X 5 DOSES
     Route: 042
     Dates: start: 20170923, end: 20170923
  9. PREDNISONE. [Suspect]
     Active Substance: PREDNISONE
     Indication: HODGKIN^S DISEASE STAGE IV
     Dosage: 20 MG/M2/DOSE, CYCLE = 21 DAYS, PO BID ON DAYS 1-7
     Route: 048
     Dates: start: 20170923, end: 20170929
  10. OXYCODONE [Suspect]
     Active Substance: OXYCODONE
     Dosage: 5 MG X1
     Route: 048
     Dates: start: 20170923, end: 20170923
  11. OXYCODONE [Suspect]
     Active Substance: OXYCODONE
     Dosage: 5 MG X1
     Route: 048
     Dates: start: 20170925, end: 20170925
  12. VINCRISTINE SULFATE. [Suspect]
     Active Substance: VINCRISTINE SULFATE
     Indication: HODGKIN^S DISEASE STAGE IV
     Dosage: 1.4 MG/M2 (MAX DOSE 2.8 MG), CYCLE = 21 DAYS, IV PUSH OVER 1 MIN OR INFUSION ON DAY 8
     Dates: start: 20170929
  13. OXYCODONE [Suspect]
     Active Substance: OXYCODONE
     Dosage: 5 MG X2
     Route: 048
     Dates: start: 20170922, end: 20170922
  14. BRENTUXIMAB VEDOTIN RECOMBINANT [Suspect]
     Active Substance: BRENTUXIMAB VEDOTIN
     Indication: HODGKIN^S DISEASE STAGE IV
     Dosage: 1.8 MG/KG/DOSE (MAX DOSE IS 180 MG), CYCLE = 21 DAYS, IV OVER 30 MIN ON DAY 1
     Route: 042
     Dates: start: 20170923
  15. DILAUDID [Concomitant]
     Active Substance: HYDROMORPHONE HYDROCHLORIDE

REACTIONS (1)
  - Colitis [Recovered/Resolved]

NARRATIVE: CASE EVENT DATE: 20171001
